FAERS Safety Report 8494091 (Version 3)
Quarter: 2013Q2

REPORT INFORMATION
  Report Type: Spontaneous
  Country: DE (occurrence: None)
  Receive Date: 20120319
  Receipt Date: 20130513
  Transmission Date: 20140414
  Serious: Yes (Hospitalization)
  Sender: FDA-Public Use
  Company Number: 2012031564

PATIENT
  Age: 76 Year
  Sex: Female

DRUGS (27)
  1. PRIVIGEN [Suspect]
     Indication: CHRONIC LYMPHOCYTIC LEUKAEMIA
     Dosage: 9:00 TO 13:30; 4 HOURS 30 MINS?(NOT OTHERWISE SPECIFIED)
     Route: 042
     Dates: start: 20111220, end: 20120117
  2. TAMSULOSIN HYDROCHLORIDE [Concomitant]
  3. RAMIPRIL [Concomitant]
  4. AMITRIPTYLINE HYDROCHLORIDE [Concomitant]
  5. PANTOZOL [Concomitant]
  6. COTRIN (BACRRIM /00086101/) [Concomitant]
  7. FENTANYL (FENTANYL) [Concomitant]
  8. KREON (PANCREATIN) [Concomitant]
  9. GABAPENTIN (GABAPENTIN) [Concomitant]
  10. NOVALGIN /00039501/ (METAMIZOLE SODIUM) [Concomitant]
  11. ACYCLOVIR [Concomitant]
  12. PEPSIN-WEIN (PEPSIN-WEIN) [Concomitant]
  13. LOPERAMID (LOPERAMIDE HYDROCHLORIDE) [Concomitant]
  14. GABAPENTIN (GABAPENTIN) [Concomitant]
  15. NOVALGIN (METAMIZOLE SODIUM) [Concomitant]
  16. REKAWAN (POTASSIUM CHLORIDE) [Concomitant]
  17. ARLEVERT (ARLEVERT) [Concomitant]
  18. PERENTEROL (SACCHAROMYCES BOULARDII) [Concomitant]
  19. MORPHIN (MORPHINE HYDROCHLORIDE) [Concomitant]
  20. DUROGESIC (FENTANYL) [Concomitant]
  21. OPIOIDS (OPIOIDS) [Concomitant]
  22. MCP /00041901/  (METOCLOPRAMIDE) [Concomitant]
  23. DRONABINOL [Concomitant]
  24. HYDROMORPHONE (HYDROMORPHONE) [Concomitant]
  25. KALINOR /00031402/ (POTASSIUM CHLORIDE) [Concomitant]
  26. ANTIBIOTICS (ANTIBIOTICS) [Concomitant]
  27. RANITIDIN (RANITIDINE HYDROCHLORIDE) [Concomitant]

REACTIONS (22)
  - Escherichia urinary tract infection [None]
  - Herpes zoster [None]
  - Orthostatic intolerance [None]
  - Diarrhoea [None]
  - Neuralgia [None]
  - Lymphadenopathy [None]
  - Dizziness [None]
  - Blood pressure decreased [None]
  - Anxiety disorder due to a general medical condition [None]
  - Nausea [None]
  - Abnormal faeces [None]
  - Decreased appetite [None]
  - Confusional state [None]
  - Neutropenia [None]
  - Flank pain [None]
  - Neck pain [None]
  - Parenteral nutrition [None]
  - General physical health deterioration [None]
  - Pain [None]
  - Chest discomfort [None]
  - Dyspnoea [None]
  - Device related sepsis [None]
